FAERS Safety Report 10592952 (Version 2)
Quarter: 2015Q1

REPORT INFORMATION
  Report Type: Spontaneous
  Country: JP (occurrence: JP)
  Receive Date: 20141119
  Receipt Date: 20150130
  Transmission Date: 20150720
  Serious: Yes (Other)
  Sender: FDA-Public Use
  Company Number: JP-PFIZER INC-2014311907

PATIENT
  Age: 65 Year
  Sex: Male

DRUGS (17)
  1. LEUCOVORIN [Concomitant]
     Active Substance: LEUCOVORIN
     Indication: RECTAL CANCER
     Dosage: 100 MG/M2, CYCLIC
     Route: 041
  2. 5-FU [Concomitant]
     Active Substance: FLUOROURACIL
     Dosage: 600 MG/M2, IV DRIP, CYCLIC
     Route: 041
  3. BEVACIZUMAB [Concomitant]
     Active Substance: BEVACIZUMAB
     Dosage: 10 MG/KG, CYCLIC
  4. TEGAFUR URACIL [Concomitant]
     Active Substance: TEGAFUR
     Indication: RECTAL CANCER
     Dosage: 400 MG/BODY
     Route: 042
  5. LEUCOVORIN [Concomitant]
     Active Substance: LEUCOVORIN
     Dosage: 200 MG/M2, CYCLIC
     Route: 041
  6. 5-FU [Concomitant]
     Active Substance: FLUOROURACIL
     Dosage: 310 MG/M2, IV BOLUS, CYCLIC
     Route: 040
  7. OXALIPLATIN. [Suspect]
     Active Substance: OXALIPLATIN
     Indication: RECTAL CANCER
     Dosage: 85 MG/M2, CYCLIC
     Route: 041
  8. LEUCOVORIN [Concomitant]
     Active Substance: LEUCOVORIN
     Dosage: 75 MG, DAILY
     Route: 041
  9. 5-FU [Concomitant]
     Active Substance: FLUOROURACIL
     Indication: RECTAL CANCER
     Dosage: 400 MG/M2, IV BOLUS, CYCLIC
     Route: 040
  10. 5-FU [Concomitant]
     Active Substance: FLUOROURACIL
     Dosage: 570 MG/M2, IV DRIP, CYCLIC
     Route: 041
  11. LEUCOVORIN [Concomitant]
     Active Substance: LEUCOVORIN
     Dosage: 160 MG/M2, CYCLIC
     Route: 041
  12. 5-FU [Concomitant]
     Active Substance: FLUOROURACIL
     Dosage: 1900 MG/M2, IV DRIP, CYCLIC
     Route: 041
  13. BEVACIZUMAB [Concomitant]
     Active Substance: BEVACIZUMAB
     Indication: RECTAL CANCER
     Dosage: 5 MG/KG, CYCLIC
  14. PANITUMUMAB [Concomitant]
     Active Substance: PANITUMUMAB
     Indication: RECTAL CANCER
     Dosage: 6 MG/KG, CYCLIC
     Route: 042
  15. 5-FU [Concomitant]
     Active Substance: FLUOROURACIL
     Dosage: 360 MG/M2, IV BOLUS, CYCLIC
     Route: 040
  16. 5-FU [Concomitant]
     Active Substance: FLUOROURACIL
     Dosage: 400 MG/M2, IV BOLUS, CYCLIC
     Route: 040
  17. 5-FU [Concomitant]
     Active Substance: FLUOROURACIL
     Dosage: 2400 MG/M2, IV DRIP, CYCLIC
     Route: 041

REACTIONS (2)
  - Anaphylactoid reaction [Unknown]
  - Neuropathy peripheral [Unknown]
